FAERS Safety Report 9267087 (Version 2)
Quarter: 2013Q2

REPORT INFORMATION
  Report Type: Spontaneous
  Country: JP (occurrence: JP)
  Receive Date: 20130502
  Receipt Date: 20130617
  Transmission Date: 20140414
  Serious: Yes (Hospitalization, Other)
  Sender: FDA-Public Use
  Company Number: JP-JNJFOC-20130319126

PATIENT
  Age: 7 Decade
  Sex: Female

DRUGS (3)
  1. INVEGA [Suspect]
     Indication: PRODUCT USED FOR UNKNOWN INDICATION
     Route: 048
  2. MAGLAX [Concomitant]
     Route: 048
  3. ACTONEL [Concomitant]
     Route: 048

REACTIONS (2)
  - Lumbar vertebral fracture [Unknown]
  - Faeces discoloured [Recovered/Resolved]
